FAERS Safety Report 11855358 (Version 1)
Quarter: 2015Q4

REPORT INFORMATION
  Report Type: Spontaneous
  Country: US (occurrence: None)
  Receive Date: 20151218
  Receipt Date: 20151218
  Transmission Date: 20160305
  Serious: Yes (Other)
  Sender: FDA-Public Use
  Company Number: None

PATIENT
  Age: 29 Year
  Sex: Female
  Weight: 54.2 kg

DRUGS (13)
  1. DARUNAVIR [Suspect]
     Active Substance: DARUNAVIR
     Indication: HIV INFECTION
     Route: 048
     Dates: start: 20151007, end: 20151113
  2. CETIRIZINE [Concomitant]
     Active Substance: CETIRIZINE HYDROCHLORIDE
  3. RITONAVIR. [Suspect]
     Active Substance: RITONAVIR
     Indication: HIV INFECTION
     Route: 048
     Dates: start: 20151007, end: 20151113
  4. DIPHENHYDRAMINE HYDROCHLORIDE. [Concomitant]
     Active Substance: DIPHENHYDRAMINE HYDROCHLORIDE
  5. COSCOF (CHLORPHENIRAMINE MALEATE/GUAIFENESIN/PHENYLEPHRINE) [Concomitant]
  6. SEPTRIM (SULFAMETHOXAZOLE/TRIMETHOPRIM) [Concomitant]
  7. RALTEGRAVIR. [Suspect]
     Active Substance: RALTEGRAVIR
     Indication: HIV INFECTION
     Route: 048
     Dates: start: 20151007, end: 20151113
  8. NEUROBION FORTE (VITAMIN B COMPLEX) [Concomitant]
  9. AUGMENTIN [Concomitant]
     Active Substance: AMOXICILLIN\CLAVULANATE POTASSIUM
  10. BUSCOPAN (BUTYLSCOPOLAMINE) [Concomitant]
  11. PIRITON (CHLORPHENIRAMINE MALEATE) [Concomitant]
  12. MULTIVITAMIN TABLETS [Concomitant]
  13. EMTRICITABINE/TENOFOVIR DF [Suspect]
     Active Substance: EMTRICITABINE
     Indication: HIV INFECTION
     Dosage: 200/300 MG ONCE EVERY DAY ORAL
     Route: 048
     Dates: start: 20151007, end: 20151112

REACTIONS (5)
  - Abdominal pain [None]
  - Hepatitis acute [None]
  - Chromaturia [None]
  - Fatigue [None]
  - Cough [None]

NARRATIVE: CASE EVENT DATE: 20151112
